FAERS Safety Report 8500669 (Version 6)
Quarter: 2013Q4

REPORT INFORMATION
  Report Type: Report from Study
  Country: JP (occurrence: JP)
  Receive Date: 20120409
  Receipt Date: 20131018
  Transmission Date: 20140711
  Serious: Yes (Hospitalization, Other)
  Sender: FDA-Public Use
  Company Number: JP-VERTEX PHARMACEUTICALS INC.-AE-2012-004786

PATIENT
  Age: 51 Year
  Sex: Male

DRUGS (10)
  1. VX-950 (TELAPREVIR) [Suspect]
     Indication: CHRONIC HEPATITIS C
     Dosage: 2250 MG, QD
     Route: 048
     Dates: start: 20120202, end: 20120228
  2. VX-950 (TELAPREVIR) [Suspect]
     Dosage: 1500 MG, QD
     Route: 048
     Dates: start: 20120229, end: 20120305
  3. REBETOL [Suspect]
     Indication: CHRONIC HEPATITIS C
     Dosage: 800 MG, QD
     Route: 048
     Dates: start: 20120202, end: 20120228
  4. REBETOL [Suspect]
     Dosage: 400 MG, QD
     Route: 048
     Dates: start: 20120229, end: 20120305
  5. PEGINTRON [Suspect]
     Indication: CHRONIC HEPATITIS C
     Dosage: 100 MCG/ WEEK
     Route: 058
     Dates: start: 20120202, end: 20120224
  6. MUCOSTA [Concomitant]
     Dosage: 300 MG, QD
     Route: 048
     Dates: start: 20120217
  7. URSO [Concomitant]
     Dosage: 600 MG, QD
     Route: 048
     Dates: start: 20120315
  8. GASTER D [Concomitant]
     Dosage: 40 MG, QD
     Route: 048
  9. MARZULENE-S [Concomitant]
     Dosage: 2.01 G, UNK
     Route: 048
  10. DOGMATYL [Concomitant]
     Route: 048
     Dates: end: 20120530

REACTIONS (7)
  - Decreased appetite [Recovered/Resolved]
  - Epistaxis [Recovered/Resolved]
  - Malaise [Recovered/Resolved]
  - White blood cell count decreased [Not Recovered/Not Resolved]
  - Neutrophil count decreased [Recovered/Resolved]
  - Haemoglobin decreased [Recovered/Resolved]
  - Dysgeusia [Recovered/Resolved]
